FAERS Safety Report 15187003 (Version 2)
Quarter: 2019Q1

REPORT INFORMATION
  Report Type: Report from Study
  Country: US (occurrence: US)
  Receive Date: 20180723
  Receipt Date: 20190130
  Transmission Date: 20190417
  Serious: No
  Sender: FDA-Public Use
  Company Number: US-EXELIXIS-CABO-18011970

PATIENT
  Age: 62 Year
  Sex: Male

DRUGS (20)
  1. OXYCODONE [Concomitant]
     Active Substance: OXYCODONE
  2. OXYCONTIN [Concomitant]
     Active Substance: OXYCODONE HYDROCHLORIDE
  3. LEVEMIR [Concomitant]
     Active Substance: INSULIN DETEMIR
  4. VASOTEC [Concomitant]
     Active Substance: ENALAPRIL MALEATE
  5. GABAPENTIN. [Concomitant]
     Active Substance: GABAPENTIN
  6. FLOMAX [Concomitant]
     Active Substance: TAMSULOSIN HYDROCHLORIDE
  7. ASA [Concomitant]
     Active Substance: ASPIRIN
  8. ZOFRAN [Concomitant]
     Active Substance: ONDANSETRON HYDROCHLORIDE
  9. ATIVAN [Concomitant]
     Active Substance: LORAZEPAM
  10. COMPAZINE [Concomitant]
     Active Substance: PROCHLORPERAZINE MALEATE
  11. ATORVASTATIN CALCIUM. [Concomitant]
     Active Substance: ATORVASTATIN CALCIUM
  12. NEURONTIN [Concomitant]
     Active Substance: GABAPENTIN
  13. PRILOSEC [Concomitant]
     Active Substance: OMEPRAZOLE MAGNESIUM
  14. ZOLOFT [Concomitant]
     Active Substance: SERTRALINE HYDROCHLORIDE
  15. TAMSULOSIN HCL [Concomitant]
     Active Substance: TAMSULOSIN HYDROCHLORIDE
  16. DELZICOL [Concomitant]
     Active Substance: MESALAMINE
  17. TOUJEO [Concomitant]
     Active Substance: INSULIN GLARGINE
  18. CABOMETYX [Suspect]
     Active Substance: CABOZANTINIB S-MALATE
     Indication: RENAL CANCER
     Dosage: 60 MG, QD
     Route: 048
     Dates: start: 20171222
  19. LIPITOR [Concomitant]
     Active Substance: ATORVASTATIN CALCIUM
  20. OMEPRAZOLE. [Concomitant]
     Active Substance: OMEPRAZOLE

REACTIONS (1)
  - Ill-defined disorder [Unknown]

NARRATIVE: CASE EVENT DATE: 201712
